FAERS Safety Report 11522882 (Version 1)
Quarter: 2015Q3

REPORT INFORMATION
  Report Type: Spontaneous
  Country: US (occurrence: US)
  Receive Date: 20150918
  Receipt Date: 20150918
  Transmission Date: 20151125
  Serious: No
  Sender: FDA-Public Use
  Company Number: US-ACTELION PHARMACEUTICALS US, INC.-A-US2015-116116

PATIENT
  Age: 64 Year
  Sex: Male

DRUGS (2)
  1. VALCHLOR [Suspect]
     Active Substance: MECHLORETHAMINE
     Indication: MYCOSIS FUNGOIDES
     Dosage: M, W, F
     Route: 061
     Dates: start: 20150312
  2. CALCIUM [Concomitant]
     Active Substance: CALCIUM

REACTIONS (3)
  - Skin burning sensation [Not Recovered/Not Resolved]
  - Skin irritation [Unknown]
  - Pruritus [Unknown]
